FAERS Safety Report 11310139 (Version 1)
Quarter: 2015Q3

REPORT INFORMATION
  Report Type: Spontaneous
  Country: US (occurrence: US)
  Receive Date: 20150724
  Receipt Date: 20150724
  Transmission Date: 20151125
  Serious: Yes (Other)
  Sender: FDA-Public Use
  Company Number: US-ELI_LILLY_AND_COMPANY-US201507007302

PATIENT
  Sex: Male

DRUGS (2)
  1. HUMULIN 70/30 [Suspect]
     Active Substance: INSULIN HUMAN
     Indication: DIABETES MELLITUS
     Dosage: 44 U, EACH MORNING
     Route: 065
  2. HUMULIN 70/30 [Suspect]
     Active Substance: INSULIN HUMAN
     Dosage: 24 U, EACH EVENING
     Route: 065

REACTIONS (3)
  - Parkinson^s disease [Unknown]
  - Dementia Alzheimer^s type [Unknown]
  - Memory impairment [Unknown]
